FAERS Safety Report 13252594 (Version 1)
Quarter: 2017Q1

REPORT INFORMATION
  Report Type: Spontaneous
  Country: US (occurrence: US)
  Receive Date: 20170220
  Receipt Date: 20170220
  Transmission Date: 20170428
  Serious: Yes (Other)
  Sender: FDA-Public Use
  Company Number: US-INDIVIOR LIMITED-INDV-098907-2017

PATIENT
  Sex: Female

DRUGS (2)
  1. SUBOXONE [Suspect]
     Active Substance: BUPRENORPHINE HYDROCHLORIDE\NALOXONE HYDROCHLORIDE
     Indication: PRODUCT USED FOR UNKNOWN INDICATION
     Dosage: UNK, ONE TIME
     Route: 065
     Dates: start: 2012, end: 2012
  2. BUPRENORPHINE GENERIC TAB [Suspect]
     Active Substance: BUPRENORPHINE
     Indication: PRODUCT USED FOR UNKNOWN INDICATION
     Dosage: 20 MG, UNK
     Route: 060
     Dates: start: 201508

REACTIONS (9)
  - Substance abuse [Recovered/Resolved]
  - Somnolence [Recovering/Resolving]
  - Pharyngeal oedema [Recovering/Resolving]
  - Road traffic accident [Recovered/Resolved]
  - Hypersensitivity [Recovering/Resolving]
  - Product preparation error [Recovered/Resolved]
  - Urticaria [Recovering/Resolving]
  - Pain [Not Recovered/Not Resolved]
  - Lower limb fracture [Recovering/Resolving]

NARRATIVE: CASE EVENT DATE: 2012
